FAERS Safety Report 7023576-7 (Version None)
Quarter: 2010Q3

REPORT INFORMATION
  Report Type: 
  Country: None (occurrence: None)
  Receive Date: 20100930
  Receipt Date: 20100930
  Transmission Date: 20110219
  Serious: Yes (Hospitalization)
  Sender: FDA-Public Use
  Company Number: None

PATIENT
  Age: 57 Year
  Sex: Male
  Weight: 154.223 kg

DRUGS (4)
  1. JANUVIA [Suspect]
     Indication: DIABETES MELLITUS
     Dosage: 100 MG 1 X DAY
     Dates: start: 20091101, end: 20100801
  2. JANUVIA [Suspect]
     Indication: WEIGHT DECREASED
     Dosage: 100 MG 1 X DAY
     Dates: start: 20091101, end: 20100801
  3. JANUMET [Suspect]
     Indication: DIABETES MELLITUS
     Dosage: 100 1X DAY
  4. JANUMET [Suspect]
     Indication: WEIGHT DECREASED
     Dosage: 100 1X DAY

REACTIONS (1)
  - PANCREATITIS [None]
